FAERS Safety Report 18512853 (Version 2)
Quarter: 2020Q4

REPORT INFORMATION
  Report Type: Report from Study
  Country: BD (occurrence: BD)
  Receive Date: 20201117
  Receipt Date: 20201123
  Transmission Date: 20210114
  Serious: Yes (Death)
  Sender: FDA-Public Use
  Company Number: NVSC2020BD306004

PATIENT
  Age: 85 Year
  Sex: Male
  Weight: 80 kg

DRUGS (1)
  1. EXELON [Suspect]
     Active Substance: RIVASTIGMINE TARTRATE
     Indication: DEMENTIA
     Dosage: UNK UNK, QD
     Route: 062
     Dates: start: 2005

REACTIONS (2)
  - Amnesia [Unknown]
  - Loss of consciousness [Fatal]

NARRATIVE: CASE EVENT DATE: 20201030
